FAERS Safety Report 13524041 (Version 6)
Quarter: 2017Q3

REPORT INFORMATION
  Report Type: Spontaneous
  Country: US (occurrence: US)
  Receive Date: 20170508
  Receipt Date: 20170925
  Transmission Date: 20171127
  Serious: Yes (Congenital Anomaly, Other)
  Sender: FDA-Public Use
  Company Number: PHEH2017US013541

PATIENT
  Sex: Female

DRUGS (2)
  1. ZOFRAN [Suspect]
     Active Substance: ONDANSETRON HYDROCHLORIDE
     Indication: FOETAL EXPOSURE DURING PREGNANCY
     Dosage: MOTHER DOSE: 08 MG, Q6H
     Route: 064
  2. ZOFRAN [Suspect]
     Active Substance: ONDANSETRON HYDROCHLORIDE
     Indication: FOETAL EXPOSURE DURING PREGNANCY
     Dosage: MOTHER DOSE: 08 MG, Q6H
     Route: 064

REACTIONS (28)
  - Middle ear effusion [Unknown]
  - Oxygen saturation decreased [Unknown]
  - Selective eating disorder [Unknown]
  - Sinus disorder [Unknown]
  - Cleft palate [Unknown]
  - Facial bones fracture [Unknown]
  - Language disorder [Unknown]
  - Eustachian tube dysfunction [Unknown]
  - Otitis media chronic [Unknown]
  - Foetal exposure during pregnancy [Unknown]
  - Gastroenteritis [Unknown]
  - Vomiting [Unknown]
  - Adenoidal hypertrophy [Unknown]
  - Hyperthermia malignant [Unknown]
  - Dermatitis diaper [Unknown]
  - Laryngospasm [Unknown]
  - Bronchospasm [Unknown]
  - Fluid imbalance [Unknown]
  - Depressed level of consciousness [Unknown]
  - Dehydration [Unknown]
  - Cerumen impaction [Unknown]
  - Metabolic acidosis [Recovered/Resolved]
  - Pyrexia [Unknown]
  - Ankyloglossia congenital [Unknown]
  - Diarrhoea neonatal [Unknown]
  - Injury [Unknown]
  - Speech sound disorder [Unknown]
  - Ear pain [Unknown]
